FAERS Safety Report 6084068-5 (Version None)
Quarter: 2009Q1

REPORT INFORMATION
  Report Type: 
  Country: None (occurrence: None)
  Receive Date: 20090219
  Receipt Date: 20090211
  Transmission Date: 20090719
  Serious: Yes (Death)
  Sender: FDA-Public Use
  Company Number: GB-ABBOTT-08P-167-0470604-00

PATIENT
  Sex: Male
  Weight: 79 kg

DRUGS (11)
  1. HUMIRA [Suspect]
     Indication: RHEUMATOID ARTHRITIS
     Route: 058
     Dates: start: 20061116, end: 20070715
  2. PREDNISOLONE [Concomitant]
     Indication: DRUG USE FOR UNKNOWN INDICATION
  3. CALCICHEW [Concomitant]
     Indication: DRUG USE FOR UNKNOWN INDICATION
  4. ACETAMINOPHEN W/ CODEINE [Concomitant]
     Indication: DRUG USE FOR UNKNOWN INDICATION
  5. GLICLAZIDE [Concomitant]
     Indication: DRUG USE FOR UNKNOWN INDICATION
  6. HYDROXYCHLOROQUINE SULFATE [Concomitant]
     Indication: DRUG USE FOR UNKNOWN INDICATION
  7. LANSOPRAZOLE [Concomitant]
     Indication: DRUG USE FOR UNKNOWN INDICATION
  8. SEREVENT [Concomitant]
     Indication: DRUG USE FOR UNKNOWN INDICATION
  9. VENTOLIN [Concomitant]
     Indication: DRUG USE FOR UNKNOWN INDICATION
  10. ARTHROTEC [Concomitant]
     Indication: DRUG USE FOR UNKNOWN INDICATION
  11. SPIRIVA [Concomitant]
     Indication: DRUG USE FOR UNKNOWN INDICATION

REACTIONS (5)
  - GASTROINTESTINAL PERFORATION [None]
  - METASTASES TO LIVER [None]
  - METASTASES TO LUNG [None]
  - PERITONITIS [None]
  - PROSTATE CANCER METASTATIC [None]
